FAERS Safety Report 6265256-1 (Version None)
Quarter: 2009Q3

REPORT INFORMATION
  Report Type: 
  Country: None (occurrence: None)
  Receive Date: 20090709
  Receipt Date: 20090709
  Transmission Date: 20100115
  Serious: Yes (Hospitalization)
  Sender: FDA-Public Use
  Company Number: None

PATIENT
  Sex: Female
  Weight: 75.6 kg

DRUGS (6)
  1. CYCLOPHOSPHAMIDE [Suspect]
     Dosage: 1432 MG
  2. DOXORUBICIN HCL [Suspect]
     Dosage: 76 MG
  3. ETOPOSIDE [Suspect]
     Dosage: 380 MG
  4. PREDNISONE [Suspect]
     Dosage: 575 MG
  5. RITUXIMAB (MOAB C2B8 ANTI CD20, CHIMERIC) [Suspect]
     Dosage: 700 MG
  6. VINCRISTINE SULFATE [Suspect]
     Dosage: 3.04 MG

REACTIONS (4)
  - BLOOD CREATININE INCREASED [None]
  - HYPOCALCAEMIA [None]
  - HYPOKALAEMIA [None]
  - HYPOPHOSPHATAEMIA [None]
